FAERS Safety Report 9964338 (Version 1)
Quarter: 2014Q1

REPORT INFORMATION
  Report Type: Spontaneous
  Country: US (occurrence: US)
  Receive Date: 20140305
  Receipt Date: 20140305
  Transmission Date: 20141002
  Serious: Yes (Other)
  Sender: FDA-Public Use
  Company Number: US-GLAXOSMITHKLINE-A1063425A

PATIENT
  Age: 45 Year
  Sex: Female

DRUGS (3)
  1. FLOVENT [Suspect]
     Indication: PRODUCT USED FOR UNKNOWN INDICATION
     Dosage: 110MCG UNKNOWN
     Route: 055
     Dates: start: 20130402
  2. OXYGEN [Concomitant]
  3. PREDNISONE [Concomitant]

REACTIONS (3)
  - Bronchopneumonia [Not Recovered/Not Resolved]
  - Cardiac failure congestive [Unknown]
  - Incorrect dosage administered [Unknown]
